FAERS Safety Report 7177633-5 (Version None)
Quarter: 2010Q4

REPORT INFORMATION
  Report Type: 
  Country: None (occurrence: None)
  Receive Date: 20101220
  Receipt Date: 20101208
  Transmission Date: 20110411
  Serious: No
  Sender: FDA-Public Use
  Company Number: US-BIOGENIDEC-2010BI043649

PATIENT
  Sex: Female

DRUGS (1)
  1. AVONEX [Suspect]
     Indication: MULTIPLE SCLEROSIS
     Route: 030
     Dates: end: 20100901

REACTIONS (5)
  - CELLULITIS [None]
  - INFLAMMATION [None]
  - INJECTION SITE INDURATION [None]
  - INJECTION SITE INFECTION [None]
  - SWELLING [None]
